FAERS Safety Report 23522202 (Version 2)
Quarter: 2024Q1

REPORT INFORMATION
  Report Type: Spontaneous
  Country: US (occurrence: US)
  Receive Date: 20240214
  Receipt Date: 20240328
  Transmission Date: 20240410
  Serious: Yes (Other)
  Sender: FDA-Public Use
  Company Number: US-SANOFI-01941419

PATIENT
  Age: 27 Year
  Sex: Female

DRUGS (1)
  1. DUPIXENT [Suspect]
     Active Substance: DUPILUMAB
     Indication: Sinus disorder
     Dosage: UNK

REACTIONS (8)
  - Myocarditis [Recovered/Resolved]
  - Chest pain [Recovered/Resolved]
  - Pericarditis [Recovered/Resolved]
  - Artery dissection [Recovered/Resolved]
  - Pleural effusion [Recovered/Resolved]
  - Eosinophil count increased [Unknown]
  - Condition aggravated [Unknown]
  - Product use in unapproved indication [Unknown]
